FAERS Safety Report 4560858-2 (Version None)
Quarter: 2005Q1

REPORT INFORMATION
  Report Type: 
  Country: None (occurrence: None)
  Receive Date: 20050121
  Receipt Date: 20050107
  Transmission Date: 20050727
  Serious: Yes (Hospitalization, Other)
  Sender: FDA-Public Use
  Company Number: 2004-00770

PATIENT
  Age: 65 Year
  Sex: Female
  Weight: 70 kg

DRUGS (7)
  1. VELCADE [Suspect]
     Indication: PLASMACYTOMA
     Dosage: 2.20 MG, INTRAVENOUS
     Route: 042
     Dates: start: 20041101, end: 20041108
  2. ZOMETA [Concomitant]
  3. ERYTHROPOIETIN (ERYTHROPOIETIN) [Concomitant]
  4. MORPHINE SULFATE [Concomitant]
  5. ALLOPURINOL [Concomitant]
  6. PANTOZOL (PANTOPRAZOLE SODIUM) [Concomitant]
  7. METOCLOPRAMIDE [Concomitant]

REACTIONS (18)
  - ALPHA 1 GLOBULIN DECREASED [None]
  - ASTHENIA [None]
  - BLOOD ALBUMIN INCREASED [None]
  - BLOOD IMMUNOGLOBULIN A DECREASED [None]
  - BLOOD IMMUNOGLOBULIN G DECREASED [None]
  - BLOOD IMMUNOGLOBULIN M DECREASED [None]
  - BLOOD LACTATE DEHYDROGENASE INCREASED [None]
  - C-REACTIVE PROTEIN INCREASED [None]
  - ELECTROPHORESIS PROTEIN ABNORMAL [None]
  - ENDOCARDITIS [None]
  - GENERAL PHYSICAL HEALTH DETERIORATION [None]
  - HAEMOGLOBIN DECREASED [None]
  - IMMUNODEFICIENCY [None]
  - IMMUNOGLOBULINS DECREASED [None]
  - LABORATORY TEST ABNORMAL [None]
  - LYMPHOCYTE COUNT DECREASED [None]
  - NEUTROPHIL COUNT INCREASED [None]
  - PYREXIA [None]
